FAERS Safety Report 6610594-3 (Version None)
Quarter: 2010Q1

REPORT INFORMATION
  Report Type: 
  Country: None (occurrence: None)
  Receive Date: 20100302
  Receipt Date: 20100217
  Transmission Date: 20100710
  Serious: Yes (Other)
  Sender: FDA-Public Use
  Company Number: US-PFIZER INC-2010020844

PATIENT
  Sex: Female

DRUGS (4)
  1. RELPAX [Suspect]
  2. SUMATRIPTAN [Suspect]
  3. ZOMIG [Suspect]
  4. FROVA [Suspect]

REACTIONS (10)
  - ABNORMAL DREAMS [None]
  - AMNESIA [None]
  - BLOOD GLUCOSE INCREASED [None]
  - BRAIN INJURY [None]
  - COGNITIVE DISORDER [None]
  - DIZZINESS [None]
  - DRUG INEFFECTIVE [None]
  - HYPERTENSION [None]
  - MIGRAINE [None]
  - VOMITING [None]
